FAERS Safety Report 20457286 (Version 1)
Quarter: 2022Q1

REPORT INFORMATION
  Report Type: Spontaneous
  Country: US (occurrence: US)
  Receive Date: 20220210
  Receipt Date: 20220210
  Transmission Date: 20220424
  Serious: No
  Sender: FDA-Public Use
  Company Number: US-JNJFOC-20220204747

PATIENT
  Age: 7 Decade
  Sex: Female

DRUGS (1)
  1. WOMENS ROGAINE [Suspect]
     Active Substance: MINOXIDIL
     Indication: Alopecia
     Dosage: DOSE: USED ONCE - TOO OILY
     Route: 061
     Dates: start: 20220122

REACTIONS (1)
  - Seborrhoea [Recovered/Resolved]

NARRATIVE: CASE EVENT DATE: 20220122
